FAERS Safety Report 12883513 (Version 1)
Quarter: 2016Q4

REPORT INFORMATION
  Report Type: Spontaneous
  Country: RU (occurrence: RU)
  Receive Date: 20161025
  Receipt Date: 20161025
  Transmission Date: 20170207
  Serious: Yes (Other)
  Sender: FDA-Public Use
  Company Number: RU-009507513-1610RUS000249

PATIENT
  Age: 40 Year
  Weight: 108.2 kg

DRUGS (4)
  1. RIBAVIRIN. [Suspect]
     Active Substance: RIBAVIRIN
     Dosage: 1000 MG/DAY FOR 14 DAYS
     Route: 048
     Dates: start: 2014, end: 2014
  2. RIBAVIRIN. [Suspect]
     Active Substance: RIBAVIRIN
     Indication: CHRONIC HEPATITIS C
     Dosage: 1400 MG/DAY AFTER MEALS
     Route: 048
     Dates: start: 20140317, end: 2014
  3. PEGINTERFERON ALFA-2B [Suspect]
     Active Substance: PEGINTERFERON ALFA-2B
     Indication: CHRONIC HEPATITIS C
     Dosage: 1.5 MG/KG (159.3 G, 0.8 ML), QW
     Route: 058
     Dates: start: 20140317
  4. RIBAVIRIN. [Suspect]
     Active Substance: RIBAVIRIN
     Dosage: 1200 MG/DAY
     Route: 048
     Dates: start: 2014, end: 2014

REACTIONS (6)
  - Leukopenia [Unknown]
  - Virologic failure [Unknown]
  - Body mass index decreased [Unknown]
  - Drug ineffective [Unknown]
  - Neutropenia [Unknown]
  - Haemoglobin decreased [Unknown]

NARRATIVE: CASE EVENT DATE: 2014
